FAERS Safety Report 6511948-6 (Version None)
Quarter: 2009Q4

REPORT INFORMATION
  Report Type: 
  Country: None (occurrence: None)
  Receive Date: 20091222
  Receipt Date: 20090617
  Transmission Date: 20100525
  Serious: Yes (Other)
  Sender: FDA-Public Use
  Company Number: US-ASTRAZENECA-2009UW15495

PATIENT
  Age: 79 Year
  Sex: Male

DRUGS (11)
  1. CRESTOR [Suspect]
     Route: 048
     Dates: start: 20090613
  2. PLAVIX [Concomitant]
  3. DIOVAN [Concomitant]
  4. CLONIDINE [Concomitant]
  5. LASIX [Concomitant]
  6. PEPCID [Concomitant]
  7. ALLOPURINOL [Concomitant]
     Indication: GOUT
  8. METOPROLOL TARTRATE [Concomitant]
  9. ZETIA [Concomitant]
  10. COQ10 [Concomitant]
  11. OMEGA OIL [Concomitant]

REACTIONS (5)
  - ARTHRALGIA [None]
  - ASTHENIA [None]
  - BLOOD CREATINE PHOSPHOKINASE INCREASED [None]
  - HYPOTONIA [None]
  - MYALGIA [None]
